FAERS Safety Report 23849533 (Version 1)
Quarter: 2024Q2

REPORT INFORMATION
  Report Type: Spontaneous
  Country: MY (occurrence: MY)
  Receive Date: 20240513
  Receipt Date: 20240513
  Transmission Date: 20240716
  Serious: Yes (Life-Threatening, Other)
  Sender: FDA-Public Use
  Company Number: MY-PFIZER INC-PV202400060805

PATIENT
  Age: 60 Year
  Sex: Male

DRUGS (12)
  1. AZITHROMYCIN [Suspect]
     Active Substance: AZITHROMYCIN
     Indication: Methaemoglobinaemia
     Dosage: UNK
     Route: 048
  2. PIPERACILLIN SODIUM\TAZOBACTAM SODIUM [Suspect]
     Active Substance: PIPERACILLIN SODIUM\TAZOBACTAM SODIUM
     Indication: Methaemoglobinaemia
     Dosage: UNK
  3. DEXAMETHASONE [Suspect]
     Active Substance: DEXAMETHASONE
     Indication: Methaemoglobinaemia
     Dosage: UNK
  4. METHYLENE BLUE [Suspect]
     Active Substance: METHYLENE BLUE
     Indication: Methaemoglobinaemia
     Dosage: 100 MG ((ABOUT 1MG/KG) OVER 15 MINUTES
     Route: 042
  5. INSULIN NOS [Suspect]
     Active Substance: INSULIN NOS
     Indication: Methaemoglobinaemia
     Dosage: UNK
  6. PERINDOPRIL [Concomitant]
     Active Substance: PERINDOPRIL
     Indication: Hypertension
     Dosage: 4 MG, DAILY
     Route: 048
  7. TICLOPIDINE [Concomitant]
     Active Substance: TICLOPIDINE
     Indication: Hypertension
     Dosage: 250 MG
  8. HYDROCHLOROTHIAZIDE [Concomitant]
     Active Substance: HYDROCHLOROTHIAZIDE
     Indication: Dyslipidaemia
     Dosage: 25 MG
  9. SLOW K [Concomitant]
     Active Substance: POTASSIUM CHLORIDE
     Indication: Hypertension
     Dosage: 600 MG
  10. FENOFIBRATE [Concomitant]
     Active Substance: FENOFIBRATE
     Indication: Dyslipidaemia
     Dosage: 145 MG
  11. SIMVASTATIN [Concomitant]
     Active Substance: SIMVASTATIN
     Indication: Dyslipidaemia
     Dosage: 20 MG
  12. METFORMIN [Concomitant]
     Active Substance: METFORMIN HYDROCHLORIDE
     Indication: Diabetes mellitus
     Dosage: 500 MG, 2X/DAY

REACTIONS (2)
  - Drug ineffective for unapproved indication [Unknown]
  - Off label use [Unknown]
